FAERS Safety Report 15210039 (Version 8)
Quarter: 2018Q4

REPORT INFORMATION
  Report Type: Report from Study
  Country: US (occurrence: US)
  Receive Date: 20180727
  Receipt Date: 20181121
  Transmission Date: 20190204
  Serious: Yes (Death, Hospitalization)
  Sender: FDA-Public Use
  Company Number: US-ACTELION-A-NJ2018-174315

PATIENT
  Age: 68 Year
  Sex: Female
  Weight: 55.78 kg

DRUGS (3)
  1. VELETRI [Suspect]
     Active Substance: EPOPROSTENOL
     Dosage: 56 NG/KG, PER MIN
     Route: 042
  2. VELETRI [Suspect]
     Active Substance: EPOPROSTENOL
     Indication: PULMONARY HYPERTENSION
     Dosage: 62 NG/KG, PER MIN
     Route: 042
  3. COUMADIN [Concomitant]
     Active Substance: WARFARIN SODIUM

REACTIONS (15)
  - Renal failure [Unknown]
  - Blood sodium decreased [Unknown]
  - Dyspnoea exertional [Unknown]
  - Fall [Recovering/Resolving]
  - Dyspnoea [Unknown]
  - Blood sodium abnormal [Unknown]
  - Urinary tract infection [Unknown]
  - Hospitalisation [Unknown]
  - Disease complication [Fatal]
  - Chest tube insertion [Unknown]
  - Asthenia [Recovering/Resolving]
  - Pleural effusion [Unknown]
  - Pulmonary hypertension [Fatal]
  - Musculoskeletal chest pain [Unknown]
  - Catatonia [Recovering/Resolving]

NARRATIVE: CASE EVENT DATE: 20180914
